FAERS Safety Report 22359964 (Version 1)
Quarter: 2023Q2

REPORT INFORMATION
  Report Type: Spontaneous
  Country: US (occurrence: US)
  Receive Date: 20230524
  Receipt Date: 20230524
  Transmission Date: 20230721
  Serious: No
  Sender: FDA-Public Use
  Company Number: US-SA-SAC20230523001651

PATIENT
  Age: 53 Year
  Sex: Female

DRUGS (13)
  1. DUPIXENT [Suspect]
     Active Substance: DUPILUMAB
     Indication: Dermatitis atopic
     Dosage: 300 MG, QOW
     Route: 058
     Dates: start: 20230211
  2. ESTRADIOL [Concomitant]
     Active Substance: ESTRADIOL
  3. GABAPENTIN [Concomitant]
     Active Substance: GABAPENTIN
  4. HYDROCODONE BITARTRATE AND ACETAMINOPHEN [Concomitant]
     Active Substance: ACETAMINOPHEN\HYDROCODONE BITARTRATE
  5. KRILL OIL [Concomitant]
     Active Substance: DIETARY SUPPLEMENT\KRILL OIL
  6. ROSUVASTATIN [Concomitant]
     Active Substance: ROSUVASTATIN
  7. TOPIRAMATE [Concomitant]
     Active Substance: TOPIRAMATE
  8. TYLENOL 8HR [Concomitant]
     Active Substance: ACETAMINOPHEN
  9. VERAPAMIL [Concomitant]
     Active Substance: VERAPAMIL HYDROCHLORIDE
  10. XYZAL [Concomitant]
     Active Substance: LEVOCETIRIZINE DIHYDROCHLORIDE
  11. HYDROXYZINE HYDROCHLORIDE [Concomitant]
     Active Substance: HYDROXYZINE HYDROCHLORIDE
  12. METHOCARBAMOL [Concomitant]
     Active Substance: METHOCARBAMOL
  13. VITAMINS NOS [Concomitant]
     Active Substance: VITAMINS
     Dosage: QD

REACTIONS (2)
  - Sleep disorder [Unknown]
  - Drug ineffective [Unknown]

NARRATIVE: CASE EVENT DATE: 20230101
